FAERS Safety Report 14014356 (Version 1)
Quarter: 2017Q3

REPORT INFORMATION
  Report Type: Spontaneous
  Country: US (occurrence: US)
  Receive Date: 20170926
  Receipt Date: 20170926
  Transmission Date: 20171128
  Serious: Yes (Other)
  Sender: FDA-Public Use
  Company Number: None

PATIENT
  Age: 77 Year
  Sex: Female
  Weight: 59.9 kg

DRUGS (10)
  1. ROCURONIUM [Suspect]
     Active Substance: ROCURONIUM BROMIDE
     Indication: SURGERY
     Dosage: ?          OTHER FREQUENCY:DOSE REPEATED;?
     Route: 042
     Dates: start: 20170915, end: 20170915
  2. DESFLURANE. [Concomitant]
     Active Substance: DESFLURANE
  3. MIDAZOLAM [Concomitant]
     Active Substance: MIDAZOLAM HYDROCHLORIDE
  4. PROPOFOL. [Concomitant]
     Active Substance: PROPOFOL
  5. SUGAMADEX [Concomitant]
  6. LIDOCAINE. [Concomitant]
     Active Substance: LIDOCAINE
  7. DEXAMETHASONE. [Concomitant]
     Active Substance: DEXAMETHASONE
  8. EPHEDRINE. [Concomitant]
     Active Substance: EPHEDRINE
  9. FENTANYL. [Concomitant]
     Active Substance: FENTANYL
  10. ONDANSETRON [Concomitant]
     Active Substance: ONDANSETRON

REACTIONS (2)
  - Product quality issue [None]
  - Drug effect decreased [None]

NARRATIVE: CASE EVENT DATE: 20170915
